FAERS Safety Report 9044618 (Version 3)
Quarter: 2013Q3

REPORT INFORMATION
  Report Type: Report from Study
  Country: NL (occurrence: NL)
  Receive Date: 20130130
  Receipt Date: 20130731
  Transmission Date: 20140515
  Serious: Yes (Hospitalization)
  Sender: FDA-Public Use
  Company Number: NL-ROCHE-1183441

PATIENT
  Age: 75 Year
  Sex: Male
  Weight: 77.6 kg

DRUGS (13)
  1. VEMURAFENIB [Suspect]
     Indication: MALIGNANT MELANOMA
     Dosage: DATE OF MOST DOSE PRIOR TO AE 22/JAN/2013
     Route: 048
     Dates: start: 20121130
  2. VEMURAFENIB [Suspect]
     Dosage: DATE OF LAST DOSE PRIOR TO SAE: 01/AUG/2012
     Route: 048
     Dates: start: 20120118
  3. VEMURAFENIB [Suspect]
     Dosage: DATE OF LAST DOSE PRIOR TO EVENT: 30/NOV/2012
     Route: 048
     Dates: start: 20120810
  4. METFORMIN [Concomitant]
     Route: 065
     Dates: start: 20081013
  5. NITRAZEPAM [Concomitant]
     Route: 065
     Dates: start: 20120801
  6. ESOMEPRAZOLE [Concomitant]
     Route: 065
     Dates: start: 20121115
  7. DOMPERIDON [Concomitant]
     Route: 065
     Dates: start: 20130122
  8. AMLODIPINE [Concomitant]
     Route: 065
     Dates: start: 20121130
  9. LOSARTAN [Concomitant]
     Route: 065
     Dates: start: 20081219
  10. NAPROXEN [Concomitant]
     Route: 065
     Dates: start: 20121115
  11. MAGNESIUM HYDROXIDE [Concomitant]
     Route: 065
     Dates: start: 20120801
  12. CARBIDOPA/LEVODOPA [Concomitant]
     Dosage: 150/37.5/MG
     Route: 065
     Dates: start: 20121204, end: 20130122
  13. CARBIDOPA/LEVODOPA [Concomitant]
     Dosage: 300/75/MG
     Route: 065
     Dates: start: 20130122

REACTIONS (1)
  - Neuralgia [Recovered/Resolved]
